FAERS Safety Report 8820630 (Version 5)
Quarter: 2012Q4

REPORT INFORMATION
  Report Type: 
  Country: US (occurrence: US)
  Receive Date: 20121002
  Receipt Date: 20121025
  Transmission Date: 20130627
  Serious: Yes (Hospitalization)
  Sender: FDA-Public Use
  Company Number: US-JNJFOC-20121000379

PATIENT
  Age: 85 Year
  Sex: Female
  Weight: 64.23 kg

DRUGS (3)
  1. XARELTO [Suspect]
     Indication: DEEP VEIN THROMBOSIS
     Route: 048
     Dates: start: 20120907, end: 20120928
  2. XARELTO [Suspect]
     Indication: HIP ARTHROPLASTY
     Route: 048
     Dates: start: 20120907, end: 20120928
  3. UNSPECIFED MEDICATIONS [Concomitant]

REACTIONS (1)
  - Gastrointestinal haemorrhage [Unknown]
